FAERS Safety Report 9204237 (Version 1)
Quarter: 2013Q2

REPORT INFORMATION
  Report Type: Spontaneous
  Country: DE (occurrence: DE)
  Receive Date: 20130402
  Receipt Date: 20130402
  Transmission Date: 20140414
  Serious: Yes (Hospitalization)
  Sender: FDA-Public Use
  Company Number: DE-ELI_LILLY_AND_COMPANY-DE201303008156

PATIENT
  Age: 76 Year
  Sex: Male

DRUGS (5)
  1. HUMALOG LISPRO [Suspect]
     Indication: DIABETES MELLITUS
     Dosage: UNK, PRN
     Route: 058
     Dates: start: 200701
  2. LANTUS [Concomitant]
     Dosage: UNK, UNKNOWN
  3. BISOPROLOL PLUS [Concomitant]
     Dosage: UNK, UNKNOWN
  4. ATACAND [Concomitant]
     Dosage: UNK, UNKNOWN
  5. SIMVASTATIN [Concomitant]
     Dosage: UNK, UNKNOWN

REACTIONS (2)
  - Lower limb fracture [Recovered/Resolved]
  - Glycosylated haemoglobin increased [Recovered/Resolved]
